FAERS Safety Report 15400970 (Version 1)
Quarter: 2018Q3

REPORT INFORMATION
  Report Type: Spontaneous
  Country: AE (occurrence: AE)
  Receive Date: 20180919
  Receipt Date: 20180919
  Transmission Date: 20181010
  Serious: Yes (Life-Threatening, Hospitalization, Other)
  Sender: FDA-Public Use
  Company Number: AE-JNJFOC-20180910825

PATIENT
  Age: 76 Year
  Sex: Female

DRUGS (1)
  1. IMBRUVICA [Suspect]
     Active Substance: IBRUTINIB
     Indication: CHRONIC LYMPHOCYTIC LEUKAEMIA
     Route: 048
     Dates: start: 201608, end: 201807

REACTIONS (6)
  - Urinary tract infection [Unknown]
  - Neuropathy peripheral [Unknown]
  - Sepsis [Unknown]
  - Respiratory muscle weakness [Unknown]
  - Muscular weakness [Unknown]
  - Infected fistula [Unknown]

NARRATIVE: CASE EVENT DATE: 201807
